FAERS Safety Report 20279742 (Version 1)
Quarter: 2022Q1

REPORT INFORMATION
  Report Type: Other
  Country: CA (occurrence: CA)
  Receive Date: 20220103
  Receipt Date: 20220103
  Transmission Date: 20220423
  Serious: Yes (Hospitalization, Other)
  Sender: FDA-Public Use
  Company Number: CA-APOTEX-2021AP047279

PATIENT
  Age: 63 Year
  Sex: Male

DRUGS (1)
  1. KETOROLAC [Suspect]
     Active Substance: KETOROLAC TROMETHAMINE
     Indication: Dental operation
     Dosage: UNK
     Route: 065

REACTIONS (2)
  - Duodenal ulcer repair [Unknown]
  - Duodenal ulcer [Unknown]
